FAERS Safety Report 12565386 (Version 1)
Quarter: 2016Q3

REPORT INFORMATION
  Report Type: Spontaneous
  Country: CZ (occurrence: CZ)
  Receive Date: 20160718
  Receipt Date: 20160718
  Transmission Date: 20161109
  Serious: Yes (Life-Threatening, Other)
  Sender: FDA-Public Use
  Company Number: CZ-B. BRAUN MEDICAL INC.-1055182

PATIENT
  Age: 33 Year
  Sex: Female
  Weight: 60 kg

DRUGS (8)
  1. PROPOFOL. [Suspect]
     Active Substance: PROPOFOL
     Route: 042
     Dates: start: 20160620, end: 20160620
  2. ALFENTANIL. [Suspect]
     Active Substance: ALFENTANIL
     Route: 042
     Dates: start: 20160620, end: 20160620
  3. METAMIZOLUM NATRICUM MONOHYDRICUM [Suspect]
     Active Substance: DIPYRONE
     Dates: start: 20160620, end: 20160620
  4. PARACETAMOLUM [Suspect]
     Active Substance: ACETAMINOPHEN
     Route: 054
     Dates: start: 20160620, end: 20160620
  5. ATROPINE SULFATE. [Concomitant]
     Active Substance: ATROPINE SULFATE
     Dates: start: 20160620, end: 20160620
  6. SODIUM CHLORIDE. [Suspect]
     Active Substance: SODIUM CHLORIDE
     Indication: GENERAL ANAESTHESIA
     Dates: start: 20160620, end: 20160620
  7. MIDAZOLAM [Suspect]
     Active Substance: MIDAZOLAM\MIDAZOLAM HYDROCHLORIDE
  8. DIAZEPAM. [Suspect]
     Active Substance: DIAZEPAM
     Dates: start: 20160620, end: 20160620

REACTIONS (3)
  - Medication error [None]
  - Product quality issue [None]
  - Disseminated intravascular coagulation [None]
